FAERS Safety Report 8909725 (Version 2)
Quarter: 2013Q1

REPORT INFORMATION
  Report Type: Spontaneous
  Country: DE (occurrence: DE)
  Receive Date: 20121115
  Receipt Date: 20130115
  Transmission Date: 20140127
  Serious: Yes (Hospitalization)
  Sender: FDA-Public Use
  Company Number: DE-009507513-1211DEU004810

PATIENT
  Age: 47 Year
  Sex: Female

DRUGS (2)
  1. ZOELY [Suspect]
     Indication: CONTRACEPTION
     Dosage: 1 QD
     Route: 048
     Dates: start: 201207, end: 201208
  2. ZOELY [Suspect]
     Indication: MENORRHAGIA

REACTIONS (4)
  - Speech disorder [Recovered/Resolved]
  - Muscular weakness [Recovered/Resolved]
  - Eye movement disorder [Recovered/Resolved]
  - Off label use [Unknown]
